FAERS Safety Report 21729773 (Version 1)
Quarter: 2022Q4

REPORT INFORMATION
  Report Type: Spontaneous
  Country: FR (occurrence: FR)
  Receive Date: 20221214
  Receipt Date: 20221214
  Transmission Date: 20230113
  Serious: Yes (Other)
  Sender: FDA-Public Use
  Company Number: None

PATIENT
  Age: 38 Year
  Sex: Male
  Weight: 92 kg

DRUGS (1)
  1. ALECENSA [Suspect]
     Active Substance: ALECTINIB HYDROCHLORIDE
     Indication: Lung adenocarcinoma
     Dosage: 600 MG MORNING AND EVENING
     Route: 065
     Dates: start: 20210909

REACTIONS (6)
  - Blood bilirubin increased [Not Recovered/Not Resolved]
  - Spur cell anaemia [Unknown]
  - Anaemia [Recovering/Resolving]
  - Condition aggravated [Recovering/Resolving]
  - Rhabdomyolysis [Not Recovered/Not Resolved]
  - Poikilocytosis [Unknown]

NARRATIVE: CASE EVENT DATE: 20210916
